FAERS Safety Report 8581593 (Version 2)
Quarter: 2013Q2

REPORT INFORMATION
  Report Type: Spontaneous
  Country: BR (occurrence: BR)
  Receive Date: 20120525
  Receipt Date: 20130513
  Transmission Date: 20140414
  Serious: Yes (Other)
  Sender: FDA-Public Use
  Company Number: BR-AMGEN-BRASP2012031632

PATIENT
  Age: 54 Year
  Sex: Female
  Weight: 85 kg

DRUGS (6)
  1. ENBREL [Suspect]
     Indication: RHEUMATOID ARTHRITIS
     Dosage: 25 MG, 2X/WEEK
     Route: 058
     Dates: start: 200904
  2. ENBREL [Suspect]
     Dosage: 50 MG, ONCE WEEKLY
  3. DEFLANIL [Concomitant]
     Dosage: UNK
  4. SERTRALINE [Concomitant]
     Dosage: UNK
  5. DONAREN [Concomitant]
     Dosage: UNK
  6. DORFLEX [Concomitant]
     Dosage: UNK

REACTIONS (4)
  - Inflammation [Unknown]
  - Spinal pain [Unknown]
  - Infection [Unknown]
  - Urinary tract infection [Unknown]
